FAERS Safety Report 4422198-1 (Version None)
Quarter: 2004Q3

REPORT INFORMATION
  Report Type: 
  Country: None (occurrence: None)
  Receive Date: 20040810
  Receipt Date: 20040728
  Transmission Date: 20050211
  Serious: Yes (Hospitalization, Other)
  Sender: FDA-Public Use
  Company Number: DE-JNJFOC-20040800020

PATIENT
  Age: 75 Year
  Sex: Male

DRUGS (4)
  1. DURAGESIC [Suspect]
     Route: 062
  2. DURAGESIC [Suspect]
     Indication: PAIN
     Route: 062
  3. VALORON [Concomitant]
     Route: 049
  4. VALORON [Concomitant]
     Indication: PAIN
     Route: 049

REACTIONS (1)
  - ADVERSE EVENT [None]
